FAERS Safety Report 24882016 (Version 1)
Quarter: 2025Q1

REPORT INFORMATION
  Report Type: Report from Study
  Country: US (occurrence: US)
  Receive Date: 20250124
  Receipt Date: 20250124
  Transmission Date: 20250408
  Serious: No
  Sender: BIOVITRUM
  Company Number: US-BIOVITRUM-2025-US-000499

PATIENT
  Age: 39 Year
  Sex: Female

DRUGS (3)
  1. DOPTELET [Suspect]
     Active Substance: AVATROMBOPAG MALEATE
     Indication: Immune thrombocytopenia
     Route: 048
     Dates: start: 20241231
  2. DOPTELET [Suspect]
     Active Substance: AVATROMBOPAG MALEATE
     Indication: Thrombocytopenia
  3. CELLCEPT [Suspect]
     Active Substance: MYCOPHENOLATE MOFETIL
     Indication: Product used for unknown indication

REACTIONS (5)
  - Headache [Recovering/Resolving]
  - Dizziness [Recovering/Resolving]
  - Diarrhoea [Unknown]
  - Emotional disorder [Unknown]
  - Loss of personal independence in daily activities [Unknown]
